FAERS Safety Report 9788585 (Version 2)
Quarter: 2014Q1

REPORT INFORMATION
  Report Type: Spontaneous
  Country: US (occurrence: US)
  Receive Date: 20131230
  Receipt Date: 20140207
  Transmission Date: 20141002
  Serious: Yes (Hospitalization)
  Sender: FDA-Public Use
  Company Number: US-PFIZER INC-2013372008

PATIENT
  Age: 48 Year
  Sex: Female
  Weight: 70.3 kg

DRUGS (3)
  1. GEODON [Suspect]
     Indication: BIPOLAR DISORDER
     Dosage: 20MG IN MORNING AND 50MG IN NIGHT
     Dates: start: 2002
  2. GEODON [Suspect]
     Indication: ANXIETY
  3. VENTOLIN [Concomitant]
     Indication: ASTHMA
     Dosage: UNK

REACTIONS (1)
  - Supraventricular tachycardia [Unknown]
